FAERS Safety Report 6538192-0 (Version None)
Quarter: 2010Q1

REPORT INFORMATION
  Report Type: 
  Country: None (occurrence: None)
  Receive Date: 20100110
  Receipt Date: 20091228
  Transmission Date: 20100710
  Serious: Yes (Life-Threatening, Hospitalization)
  Sender: FDA-Public Use
  Company Number: DE-1180005

PATIENT
  Age: 72 Year
  Sex: Male

DRUGS (6)
  1. FLUORESCITE [Suspect]
     Indication: VENOUS OCCLUSION
     Dosage: 4 ML INTRAVENOUS BOLUS
     Route: 040
  2. HYDROCHLOROTHIAZIDE [Concomitant]
  3. DOXAZOSIN (DOXAZOSIN MESILATE) [Concomitant]
  4. ENALAPRIL MALEATE [Concomitant]
  5. METFORMIN HCL [Concomitant]
  6. CORIFEO (LERCANIDIPINE HYDROCHLORIDE) [Concomitant]

REACTIONS (8)
  - ACUTE MYOCARDIAL INFARCTION [None]
  - ASTHENIA [None]
  - ATRIOVENTRICULAR BLOCK FIRST DEGREE [None]
  - CHEST DISCOMFORT [None]
  - FATIGUE [None]
  - HYPERHIDROSIS [None]
  - NAUSEA [None]
  - RECTAL TENESMUS [None]
